FAERS Safety Report 7108688-1 (Version None)
Quarter: 2010Q4

REPORT INFORMATION
  Report Type: 
  Country: None (occurrence: None)
  Receive Date: 20101117
  Receipt Date: 20101114
  Transmission Date: 20110411
  Serious: Yes (Other)
  Sender: FDA-Public Use
  Company Number: CN-ROCHE-741409

PATIENT
  Age: 65 Year
  Sex: Female

DRUGS (2)
  1. HERCEPTIN [Suspect]
     Route: 065
     Dates: start: 20091101
  2. LAPATINIB [Concomitant]

REACTIONS (1)
  - DISEASE PROGRESSION [None]
